FAERS Safety Report 7891786 (Version 4)
Quarter: 2013Q3

REPORT INFORMATION
  Report Type: Report from Study
  Country: CA (occurrence: CA)
  Receive Date: 20110408
  Receipt Date: 20130910
  Transmission Date: 20140515
  Serious: Yes (Hospitalization, Other)
  Sender: FDA-Public Use
  Company Number: PHHY2011CA25382

PATIENT
  Age: 77 Year
  Sex: Male

DRUGS (2)
  1. SANDOSTATIN LAR [Suspect]
     Indication: ACROMEGALY
     Dosage: 40 MG, ONCE A MONTH
     Route: 030
     Dates: start: 20071212
  2. SANDOSTATIN LAR [Suspect]
     Dosage: 40 MG, EVERY 4 WEEKS
     Route: 030

REACTIONS (6)
  - Loss of consciousness [Unknown]
  - Cholelithiasis [Unknown]
  - Bile duct stone [Unknown]
  - Muscle spasms [Unknown]
  - Back pain [Unknown]
  - Abdominal pain [Unknown]
